FAERS Safety Report 20532953 (Version 1)
Quarter: 2022Q1

REPORT INFORMATION
  Report Type: Spontaneous
  Country: JP (occurrence: JP)
  Receive Date: 20220301
  Receipt Date: 20220301
  Transmission Date: 20220424
  Serious: Yes (Hospitalization)
  Sender: FDA-Public Use
  Company Number: JP-DSJP-DSJ-2022-106543

PATIENT
  Age: 84 Year
  Sex: Male

DRUGS (4)
  1. EDOXABAN TOSYLATE [Suspect]
     Active Substance: EDOXABAN TOSYLATE
     Indication: Atrial fibrillation
     Dosage: 30 MG, QD
     Route: 048
     Dates: start: 20211127, end: 20220120
  2. EDOXABAN TOSYLATE [Suspect]
     Active Substance: EDOXABAN TOSYLATE
     Dosage: 15 MG, QD
     Route: 048
     Dates: start: 2022
  3. CALCIUM POLYSTYRENE SULFONATE [Concomitant]
     Active Substance: CALCIUM POLYSTYRENE SULFONATE
     Indication: Blood calcium decreased
     Dosage: UNK
     Route: 048
  4. NORVASC [Concomitant]
     Active Substance: AMLODIPINE BESYLATE
     Indication: Hypertension
     Dosage: 2.5 MG
     Route: 048

REACTIONS (2)
  - Cardiac failure [Unknown]
  - Haemoptysis [Not Recovered/Not Resolved]

NARRATIVE: CASE EVENT DATE: 20211220
